FAERS Safety Report 8973830 (Version 1)
Quarter: 2012Q4

REPORT INFORMATION
  Report Type: 
  Country: GB (occurrence: GB)
  Receive Date: 20121219
  Receipt Date: 20121219
  Transmission Date: 20130627
  Serious: Yes (Hospitalization, Other)
  Sender: FDA-Public Use
  Company Number: GB-PAR PHARMACEUTICAL, INC-2012SCPR004758

PATIENT

DRUGS (3)
  1. LEVETIRACETAM [Suspect]
     Indication: MYOCLONUS
     Dosage: 750 mg, bid
     Route: 065
  2. SODIUM VALPROATE [Concomitant]
     Indication: MYOCLONUS
     Dosage: UNK, Unknown
     Route: 065
  3. CLOBAZAM [Concomitant]
     Indication: MYOCLONUS
     Dosage: UNK, Unknown
     Route: 065

REACTIONS (4)
  - Cognitive disorder [Recovering/Resolving]
  - Aphasia [Unknown]
  - Circadian rhythm sleep disorder [Recovered/Resolved]
  - Agitation [Recovered/Resolved]
